FAERS Safety Report 6175473-7 (Version None)
Quarter: 2009Q2

REPORT INFORMATION
  Report Type: 
  Country: None (occurrence: None)
  Receive Date: 20090430
  Receipt Date: 20090421
  Transmission Date: 20091009
  Serious: Yes (Hospitalization)
  Sender: FDA-Public Use
  Company Number: JP-SANOFI-SYNTHELABO-A01200902449

PATIENT
  Sex: Female
  Weight: 40 kg

DRUGS (1)
  1. MYSLEE [Suspect]
     Indication: DRUG USE FOR UNKNOWN INDICATION
     Dosage: 10 MG
     Route: 048
     Dates: end: 20090217

REACTIONS (3)
  - ABDOMINAL PAIN UPPER [None]
  - INFLAMMATION [None]
  - PYREXIA [None]
